FAERS Safety Report 12633236 (Version 2)
Quarter: 2016Q3

REPORT INFORMATION
  Report Type: Spontaneous
  Country: US (occurrence: US)
  Receive Date: 20160808
  Receipt Date: 20160808
  Transmission Date: 20161109
  Serious: No
  Sender: FDA-Public Use
  Company Number: US-BEH-2016059723

PATIENT
  Age: 78 Year
  Sex: Female
  Weight: 74 kg

DRUGS (35)
  1. SALINE [Concomitant]
     Active Substance: SODIUM CHLORIDE
  2. ZETIA [Concomitant]
     Active Substance: EZETIMIBE
  3. SYSTANE (HYPROMELLOSE 2910 (4000 MPA.S)) [Concomitant]
     Active Substance: HYPROMELLOSE 2910 (4000 MPA.S)
  4. LANTUS [Concomitant]
     Active Substance: INSULIN GLARGINE
  5. LEVALBUTEROL. [Concomitant]
     Active Substance: LEVALBUTEROL
  6. IPRATROPIUM [Concomitant]
     Active Substance: IPRATROPIUM
  7. CARDIZEM [Concomitant]
     Active Substance: DILTIAZEM HYDROCHLORIDE
  8. GLIMEPIRIDE. [Concomitant]
     Active Substance: GLIMEPIRIDE
  9. XANAX [Concomitant]
     Active Substance: ALPRAZOLAM
  10. KETOROLAC [Concomitant]
     Active Substance: KETOROLAC\KETOROLAC TROMETHAMINE
  11. AMIODARONE [Concomitant]
     Active Substance: AMIODARONE
  12. THE ORIGINAL NATURAL HERB COUGH DROPS [Concomitant]
     Active Substance: MENTHOL
  13. OMEPRAZOLE. [Concomitant]
     Active Substance: OMEPRAZOLE
  14. EPINASTINE [Concomitant]
     Active Substance: EPINASTINE
  15. OXYCODONE [Concomitant]
     Active Substance: OXYCODONE
  16. PREDNISONE. [Concomitant]
     Active Substance: PREDNISONE
  17. PROBIOTIC [Concomitant]
     Active Substance: PROBIOTICS NOS
  18. ADVAIR HFA [Concomitant]
     Active Substance: FLUTICASONE PROPIONATE\SALMETEROL XINAFOATE
  19. HIZENTRA [Suspect]
     Active Substance: HUMAN IMMUNOGLOBULIN G
     Indication: IMMUNODEFICIENCY COMMON VARIABLE
     Route: 058
     Dates: start: 20110321
  20. MEDROL [Concomitant]
     Active Substance: METHYLPREDNISOLONE
  21. EMLA [Concomitant]
     Active Substance: LIDOCAINE\PRILOCAINE
  22. XOPENEX [Concomitant]
     Active Substance: LEVALBUTEROL HYDROCHLORIDE
  23. XALATAN [Concomitant]
     Active Substance: LATANOPROST
  24. ZANTAC [Concomitant]
     Active Substance: RANITIDINE HYDROCHLORIDE
  25. LIDOCAINE/PRILOCAINE [Concomitant]
     Active Substance: LIDOCAINE\PRILOCAINE
  26. MICARDIS [Concomitant]
     Active Substance: TELMISARTAN
  27. VITAMIN D [Concomitant]
     Active Substance: CHOLECALCIFEROL
  28. LANTUS [Concomitant]
     Active Substance: INSULIN GLARGINE
  29. ALBUTEROL. [Concomitant]
     Active Substance: ALBUTEROL
  30. SPIRIVA [Concomitant]
     Active Substance: TIOTROPIUM BROMIDE MONOHYDRATE
  31. ACETAMINOPHEN. [Concomitant]
     Active Substance: ACETAMINOPHEN
  32. DIPHENHYDRAMINE. [Concomitant]
     Active Substance: DIPHENHYDRAMINE
  33. SYMBICORT [Concomitant]
     Active Substance: BUDESONIDE\FORMOTEROL FUMARATE DIHYDRATE
  34. DICYCLOMINE [Concomitant]
     Active Substance: DICYCLOMINE HYDROCHLORIDE
  35. METFORMIN [Concomitant]
     Active Substance: METFORMIN HYDROCHLORIDE

REACTIONS (1)
  - Urinary tract infection [Unknown]

NARRATIVE: CASE EVENT DATE: 201511
